FAERS Safety Report 17242869 (Version 2)
Quarter: 2020Q1

REPORT INFORMATION
  Report Type: Report from Study
  Country: FR (occurrence: FR)
  Receive Date: 20200107
  Receipt Date: 20200207
  Transmission Date: 20200409
  Serious: Yes (Hospitalization)
  Sender: FDA-Public Use
  Company Number: FR-MYLANLABS-2020M1001298

PATIENT
  Age: 71 Year
  Sex: Male
  Weight: 80 kg

DRUGS (8)
  1. LENOGRASTIM [Suspect]
     Active Substance: LENOGRASTIM
     Dosage: UNK
     Route: 051
  2. PREDNISONE. [Suspect]
     Active Substance: PREDNISONE
     Dosage: UNK
     Route: 048
  3. LENOGRASTIM [Suspect]
     Active Substance: LENOGRASTIM
     Indication: PRODUCT USED FOR UNKNOWN INDICATION
     Dosage: UNK
     Route: 051
  4. PREDNISONE. [Suspect]
     Active Substance: PREDNISONE
     Indication: PROSTATE CANCER METASTATIC
     Dosage: UNK
     Route: 048
  5. CABAZITAXEL [Suspect]
     Active Substance: CABAZITAXEL
     Dosage: UNK UNK, CYCLE(UNK UNK,QCY)
     Route: 051
     Dates: start: 20180403, end: 20180403
  6. METOCLOPRAMIDE. [Concomitant]
     Active Substance: METOCLOPRAMIDE
     Indication: NAUSEA
     Dosage: UNK UNK,UNK
     Route: 065
     Dates: start: 20180216
  7. CABAZITAXEL [Suspect]
     Active Substance: CABAZITAXEL
     Indication: PROSTATE CANCER METASTATIC
     Dosage: UNK UNK, CYCLE (UNK UNK,QCY)
     Route: 051
     Dates: start: 20180129, end: 20180129
  8. ZOLADEX [Concomitant]
     Active Substance: GOSERELIN ACETATE
     Indication: PRODUCT USED FOR UNKNOWN INDICATION
     Dosage: UNK UNK,UNK
     Route: 065
     Dates: start: 20110215

REACTIONS (2)
  - Urinary tract infection [Recovered/Resolved]
  - Malnutrition [Recovered/Resolved]

NARRATIVE: CASE EVENT DATE: 20180413
